FAERS Safety Report 22205871 (Version 3)
Quarter: 2023Q2

REPORT INFORMATION
  Report Type: Spontaneous
  Country: CA (occurrence: CA)
  Receive Date: 20230413
  Receipt Date: 20230627
  Transmission Date: 20230721
  Serious: Yes (Death, Other)
  Sender: FDA-Public Use
  Company Number: CA-CELLTRION INC.-2021CA012560

PATIENT

DRUGS (18)
  1. INFLECTRA [Suspect]
     Active Substance: INFLIXIMAB-DYYB
     Indication: Colitis ulcerative
     Dosage: 400 MG, 0, 2, 6, THEN EVERY 6 WEEKS
     Route: 042
     Dates: start: 20210820
  2. INFLECTRA [Suspect]
     Active Substance: INFLIXIMAB-DYYB
     Dosage: 400 MG, AT 0 , 2, 6 WEEKS
     Route: 042
     Dates: start: 20210820, end: 20211001
  3. INFLECTRA [Suspect]
     Active Substance: INFLIXIMAB-DYYB
     Dosage: 400 MG, 0, 2, 6, THEN EVERY 6 WEEKS
     Route: 042
     Dates: start: 20210903
  4. INFLECTRA [Suspect]
     Active Substance: INFLIXIMAB-DYYB
     Dosage: 400 MG, 0, 2, 6, THEN EVERY 6 WEEKS
     Route: 042
     Dates: start: 20211001
  5. INFLECTRA [Suspect]
     Active Substance: INFLIXIMAB-DYYB
     Dosage: 400 MG, 0, 2, 6, THEN EVERY 6 WEEKS
     Route: 042
     Dates: start: 20211112
  6. INFLECTRA [Suspect]
     Active Substance: INFLIXIMAB-DYYB
     Dosage: 400 MG, EVERY 6 WEEKS
     Route: 042
     Dates: start: 20211112, end: 20220504
  7. INFLECTRA [Suspect]
     Active Substance: INFLIXIMAB-DYYB
     Dosage: UNK
     Dates: start: 20211229
  8. INFLECTRA [Suspect]
     Active Substance: INFLIXIMAB-DYYB
     Dosage: 400 MG, 0, 2, 6, THEN EVERY 6 WEEKS
     Route: 042
     Dates: start: 20220209
  9. INFLECTRA [Suspect]
     Active Substance: INFLIXIMAB-DYYB
     Dosage: 400 MG, 0, 2, 6, THEN EVERY 6 WEEKS
     Route: 042
     Dates: start: 20220323
  10. INFLECTRA [Suspect]
     Active Substance: INFLIXIMAB-DYYB
     Dosage: 400 MG, 0, 2, 6, THEN EVERY 6 WEEKS
     Route: 042
     Dates: start: 20220504
  11. INFLECTRA [Suspect]
     Active Substance: INFLIXIMAB-DYYB
     Dosage: 300 MG, MD ADVISED 300 MG TODAY, EVERY 6 WEEKS
     Route: 042
     Dates: start: 20220615
  12. INFLECTRA [Suspect]
     Active Substance: INFLIXIMAB-DYYB
     Dosage: 300 MG, EVERY 6 WEEK
     Route: 042
     Dates: start: 20220729
  13. INFLECTRA [Suspect]
     Active Substance: INFLIXIMAB-DYYB
     Dosage: 300 MG, EVERY 6 WEEK
     Route: 042
     Dates: start: 20220907
  14. INFLECTRA [Suspect]
     Active Substance: INFLIXIMAB-DYYB
     Dosage: 300 MG, EVERY 6 WEEK
     Route: 042
     Dates: start: 20221019
  15. INFLECTRA [Suspect]
     Active Substance: INFLIXIMAB-DYYB
     Dosage: 300 MG, EVERY 6 WEEK
     Route: 042
     Dates: start: 20221130
  16. INFLECTRA [Suspect]
     Active Substance: INFLIXIMAB-DYYB
     Dosage: 300 MG, EVERY 6 WEEK
     Route: 042
     Dates: start: 20230111
  17. INFLECTRA [Suspect]
     Active Substance: INFLIXIMAB-DYYB
     Dosage: 300 MG, EVERY 6 WEEK
     Route: 042
     Dates: start: 20230222
  18. INFLECTRA [Suspect]
     Active Substance: INFLIXIMAB-DYYB
     Dosage: 300 MG
     Route: 042
     Dates: start: 20230405

REACTIONS (9)
  - Death [Fatal]
  - Chronic obstructive pulmonary disease [Recovered/Resolved]
  - Decreased appetite [Recovering/Resolving]
  - Weight decreased [Not Recovered/Not Resolved]
  - Condition aggravated [Recovering/Resolving]
  - Blood pressure fluctuation [Unknown]
  - Malaise [Recovered/Resolved]
  - Off label use [Unknown]
  - Incorrect dose administered [Unknown]

NARRATIVE: CASE EVENT DATE: 20210101
